FAERS Safety Report 11730108 (Version 1)
Quarter: 2015Q4

REPORT INFORMATION
  Report Type: Report from Study
  Country: SE (occurrence: SE)
  Receive Date: 20151112
  Receipt Date: 20151112
  Transmission Date: 20160304
  Serious: Yes (Hospitalization)
  Sender: FDA-Public Use
  Company Number: SE-ABBVIE-11P-150-0722656-01

PATIENT
  Age: 26 Year
  Sex: Female
  Weight: 50 kg

DRUGS (9)
  1. HUMIRA [Suspect]
     Active Substance: ADALIMUMAB
     Indication: CROHN^S DISEASE
     Dosage: BASELINE
     Route: 058
     Dates: start: 20080722, end: 20080722
  2. HUMIRA [Suspect]
     Active Substance: ADALIMUMAB
     Route: 058
     Dates: end: 20090623
  3. DIMOR [Concomitant]
     Active Substance: LOPERAMIDE
     Indication: CROHN^S DISEASE
     Dates: start: 20070112
  4. BETNOVAT MED CHINOFORM [Concomitant]
     Indication: RASH
  5. PROPYLESS [Concomitant]
     Indication: RASH
  6. PENTASA [Concomitant]
     Active Substance: MESALAMINE
     Indication: CROHN^S DISEASE
     Dates: start: 20090818
  7. PROPYLESS [Concomitant]
     Indication: RASH
     Dates: start: 20090407
  8. IMUREL [Concomitant]
     Active Substance: AZATHIOPRINE SODIUM
     Indication: CROHN^S DISEASE
     Dates: start: 20081014
  9. BETNOVAT MED CHINOFORM [Concomitant]
     Indication: RASH
     Dosage: TWICE A DAY DURING WEEK 1, DAILY DURING WEEK 2, EVERY OTHER DAY FROM WEEK 3
     Dates: start: 20090407

REACTIONS (1)
  - Crohn^s disease [Unknown]

NARRATIVE: CASE EVENT DATE: 20101210
